FAERS Safety Report 12420350 (Version 1)
Quarter: 2016Q2

REPORT INFORMATION
  Report Type: Spontaneous
  Country: CN (occurrence: CN)
  Receive Date: 20160531
  Receipt Date: 20160531
  Transmission Date: 20160815
  Serious: Yes (Hospitalization)
  Sender: FDA-Public Use
  Company Number: PHHY2016CN073441

PATIENT
  Age: 65 Year
  Sex: Male

DRUGS (2)
  1. VALSARTAN. [Suspect]
     Active Substance: VALSARTAN
     Indication: HYPERTENSION
     Dosage: 40 MG, QD
     Route: 048
  2. INDAPAMIDE. [Suspect]
     Active Substance: INDAPAMIDE
     Indication: HYPERTENSION
     Dosage: 2.5 MG, QD
     Route: 048

REACTIONS (9)
  - Decreased appetite [Unknown]
  - Vomiting [Unknown]
  - Hyponatraemia [Recovered/Resolved]
  - Fatigue [Unknown]
  - Somnolence [Unknown]
  - Hypochloraemia [Unknown]
  - Hypokalaemia [Recovered/Resolved]
  - Discomfort [Unknown]
  - Nausea [Unknown]
